FAERS Safety Report 13383357 (Version 1)
Quarter: 2017Q1

REPORT INFORMATION
  Report Type: Report from Study
  Country: JP (occurrence: JP)
  Receive Date: 20170329
  Receipt Date: 20170329
  Transmission Date: 20170429
  Serious: Yes (Other)
  Sender: FDA-Public Use
  Company Number: JP-PFIZER INC-2017131974

PATIENT

DRUGS (13)
  1. OMEPRAZOLE. [Concomitant]
     Active Substance: OMEPRAZOLE
     Dosage: 10 MG, UNK
  2. TOCOPHEROL [Concomitant]
     Active Substance: TOCOPHEROL
     Dosage: 200 MG, UNK
  3. IRBESARTAN. [Concomitant]
     Active Substance: IRBESARTAN
     Dosage: 100 MG, UNK
  4. PROBUCOL [Concomitant]
     Active Substance: PROBUCOL
     Dosage: 250 MG, UNK
  5. PEMETREXED [Interacting]
     Active Substance: PEMETREXED
     Indication: NON-SMALL CELL LUNG CANCER
     Dosage: 500 MG/M2, UNK FOR 10 MIN
     Route: 041
  6. ASPRIN [Concomitant]
     Active Substance: ASPIRIN
     Dosage: 100 MG, UNK
  7. DOXAZOSIN [Concomitant]
     Active Substance: DOXAZOSIN\DOXAZOSIN MESYLATE
     Dosage: 2 MG, UNK
  8. CARBOPLATIN. [Concomitant]
     Active Substance: CARBOPLATIN
     Indication: NON-SMALL CELL LUNG CANCER
     Dosage: DOSE CALCULATED TO PRODUCE AN AREA UNDER THE CONCENTRATION-TIME CURVE OF 5 OR 6 MG?MIN/ML
     Route: 041
  9. AMLODIPINE BESILATE [Suspect]
     Active Substance: AMLODIPINE BESYLATE
     Dosage: 2.5 MG, UNK
  10. BEVACIZUMAB [Concomitant]
     Active Substance: BEVACIZUMAB
     Indication: NON-SMALL CELL LUNG CANCER
     Dosage: 15 MG/KG, UNKN FOR 90 MINUTES
     Route: 041
  11. ECABET SODIUM [Concomitant]
     Active Substance: ECABET SODIUM
     Dosage: UNK
  12. MAGNESIUM OXIDE. [Concomitant]
     Active Substance: MAGNESIUM OXIDE
     Dosage: 330 MG, UNK
  13. ALFACALCIDOL [Concomitant]
     Active Substance: ALFACALCIDOL
     Dosage: 0.25 UG, UNK

REACTIONS (2)
  - Drug interaction [Unknown]
  - Haematotoxicity [Unknown]
